FAERS Safety Report 19741940 (Version 3)
Quarter: 2021Q3

REPORT INFORMATION
  Report Type: Spontaneous
  Country: UY (occurrence: UY)
  Receive Date: 20210824
  Receipt Date: 20210922
  Transmission Date: 20211014
  Serious: No
  Sender: FDA-Public Use
  Company Number: UY-PFIZER INC-202101011698

PATIENT
  Age: 12 Year
  Sex: Male

DRUGS (2)
  1. GENOTROPIN [Suspect]
     Active Substance: SOMATROPIN
     Indication: SHORT STATURE
     Dosage: 0.6 TO 1 MG, 7 TIMES A WEEK
     Dates: start: 20201113
  2. GENOTROPIN [Suspect]
     Active Substance: SOMATROPIN
     Indication: FOETAL GROWTH RESTRICTION

REACTIONS (4)
  - Drug dose omission by device [Unknown]
  - Device difficult to use [Unknown]
  - Device issue [Unknown]
  - Application site pain [Not Recovered/Not Resolved]

NARRATIVE: CASE EVENT DATE: 202108
